FAERS Safety Report 10368759 (Version 1)
Quarter: 2014Q3

REPORT INFORMATION
  Report Type: Other
  Country: GB (occurrence: GB)
  Receive Date: 20140807
  Receipt Date: 20140807
  Transmission Date: 20150326
  Serious: Yes (Other)
  Sender: FDA-Public Use
  Company Number: GB-MYLAN-2014S1017667

PATIENT

DRUGS (2)
  1. SINTHROME [Suspect]
     Active Substance: ACENOCOUMAROL
     Dosage: UNK
  2. WARFARIN [Suspect]
     Active Substance: WARFARIN
     Indication: TRANSIENT ISCHAEMIC ATTACK
     Dosage: UNK
     Dates: start: 200112, end: 200305

REACTIONS (3)
  - Transient ischaemic attack [Recovered/Resolved]
  - International normalised ratio abnormal [Unknown]
  - Chest pain [Unknown]

NARRATIVE: CASE EVENT DATE: 200112
